FAERS Safety Report 7002805-X (Version None)
Quarter: 2010Q3

REPORT INFORMATION
  Report Type: 
  Country: None (occurrence: None)
  Receive Date: 20100920
  Receipt Date: 20100913
  Transmission Date: 20110219
  Serious: Yes (Hospitalization)
  Sender: FDA-Public Use
  Company Number: CHPA2010US14726

PATIENT
  Age: 86 Year
  Sex: Male

DRUGS (4)
  1. VOLTAREN [Suspect]
     Indication: ARTHRALGIA
     Dosage: 4 G, QID
     Route: 061
     Dates: start: 20090101
  2. VOLTAREN [Suspect]
     Indication: PAIN IN EXTREMITY
  3. POTASSIUM [Suspect]
     Dosage: UNK, UNK
  4. LYRICA [Suspect]
     Dosage: UNK, UNK

REACTIONS (6)
  - BLOOD POTASSIUM INCREASED [None]
  - BLOOD SODIUM DECREASED [None]
  - LIP DISORDER [None]
  - OEDEMA PERIPHERAL [None]
  - OFF LABEL USE [None]
  - WRONG TECHNIQUE IN DRUG USAGE PROCESS [None]
